FAERS Safety Report 15998662 (Version 2)
Quarter: 2019Q1

REPORT INFORMATION
  Report Type: Spontaneous
  Country: PT (occurrence: PT)
  Receive Date: 20190223
  Receipt Date: 20190328
  Transmission Date: 20190418
  Serious: Yes (Hospitalization, Other)
  Sender: FDA-Public Use
  Company Number: PT-ACCORD-107967

PATIENT
  Age: 69 Year
  Sex: Female

DRUGS (3)
  1. ALISKIREN [Interacting]
     Active Substance: ALISKIREN
     Indication: HYPERTENSION
     Route: 065
  2. PANTOPRAZOLE [Concomitant]
     Active Substance: PANTOPRAZOLE
     Indication: GASTROOESOPHAGEAL REFLUX DISEASE
     Route: 065
  3. OLMESARTAN/OLMESARTAN MEDOXOMIL [Suspect]
     Active Substance: OLMESARTAN MEDOXOMIL
     Indication: HYPERTENSION
     Route: 065

REACTIONS (10)
  - Hypovolaemic shock [Recovered/Resolved]
  - Deep vein thrombosis [Recovering/Resolving]
  - Diarrhoea [Recovered/Resolved]
  - Gastrointestinal disorder [Recovered/Resolved]
  - Dehydration [Recovering/Resolving]
  - Metabolic acidosis [Recovering/Resolving]
  - Blood potassium decreased [None]
  - Drug interaction [Unknown]
  - Sprue-like enteropathy [Recovered/Resolved]
  - Acute kidney injury [Recovered/Resolved]
